FAERS Safety Report 7790321-7 (Version None)
Quarter: 2011Q3

REPORT INFORMATION
  Report Type: 
  Country: None (occurrence: None)
  Receive Date: 20110930
  Receipt Date: 20110928
  Transmission Date: 20111222
  Serious: No
  Sender: FDA-Public Use
  Company Number: US-B.I. PHARMACEUTICALS,INC./RIDGEFIELD-2011-BP-23078BP

PATIENT
  Sex: Female

DRUGS (10)
  1. VALIUM [Concomitant]
     Indication: ANXIETY
     Dosage: 5 MG
     Route: 048
     Dates: start: 19710101
  2. LORTAB [Concomitant]
     Indication: ARTHRITIS
     Route: 048
     Dates: start: 20100101
  3. CYCLOPHOSPHAMIDE [Concomitant]
     Indication: MUSCLE SPASMS
     Route: 048
     Dates: start: 20100101
  4. DURAGESIC-100 [Concomitant]
     Indication: SCIATICA
     Dates: start: 20030101
  5. LISINOPRIL [Concomitant]
     Indication: HYPERTENSION
     Dosage: 40 MG
     Route: 048
     Dates: start: 20090101
  6. VERAPAMIL [Concomitant]
     Indication: HEART RATE INCREASED
     Route: 048
     Dates: start: 19960101
  7. PRADAXA [Suspect]
     Indication: ATRIAL FIBRILLATION
     Dosage: 300 MG
     Route: 048
     Dates: start: 20110822, end: 20110912
  8. CITALOPRAM [Concomitant]
     Indication: DEPRESSION
     Dosage: 40 MG
     Route: 048
     Dates: start: 20060101
  9. CARVEDILOL [Concomitant]
     Indication: TACHYCARDIA
     Dosage: 25 MG
     Route: 048
     Dates: start: 20100101
  10. VERAPAMIL EXTENDED-RELEASE [Concomitant]
     Indication: TACHYCARDIA
     Dosage: 240 MG
     Route: 048
     Dates: start: 19960101

REACTIONS (3)
  - ASTHENIA [None]
  - FALL [None]
  - CONTUSION [None]
